FAERS Safety Report 22325848 (Version 1)
Quarter: 2023Q2

REPORT INFORMATION
  Report Type: Spontaneous
  Country: CA (occurrence: CA)
  Receive Date: 20230516
  Receipt Date: 20230516
  Transmission Date: 20230722
  Serious: Yes (Other)
  Sender: FDA-Public Use
  Company Number: CA-FreseniusKabi-FK202306268

PATIENT
  Age: 3 Month
  Sex: Male

DRUGS (16)
  1. ETOPOSIDE [Suspect]
     Active Substance: ETOPOSIDE
     Indication: Chloroma
     Route: 065
  2. ETOPOSIDE [Suspect]
     Active Substance: ETOPOSIDE
     Indication: Brain sarcoma
     Route: 065
  3. FLUDARABINE PHOSPHATE [Suspect]
     Active Substance: FLUDARABINE PHOSPHATE
     Indication: Chloroma
     Dosage: 3 REGIMEN
     Route: 065
  4. FLUDARABINE PHOSPHATE [Suspect]
     Active Substance: FLUDARABINE PHOSPHATE
     Indication: Brain sarcoma
     Route: 065
  5. FLUDARABINE PHOSPHATE [Suspect]
     Active Substance: FLUDARABINE PHOSPHATE
     Route: 065
  6. CYTARABINE [Suspect]
     Active Substance: CYTARABINE
     Indication: Chloroma
     Dosage: POWDER FORSOLUTION INTRATHECAL
     Route: 037
  7. CYTARABINE [Suspect]
     Active Substance: CYTARABINE
     Indication: Brain sarcoma
     Dosage: DOSAGE FORM: POWDER FOR SOLUTION INTRATHECAL
     Route: 065
  8. DAUNORUBICIN HYDROCHLORIDE [Suspect]
     Active Substance: DAUNORUBICIN HYDROCHLORIDE
     Indication: Chloroma
     Route: 065
  9. DAUNORUBICIN HYDROCHLORIDE [Suspect]
     Active Substance: DAUNORUBICIN HYDROCHLORIDE
     Indication: Brain sarcoma
     Dosage: POWDER FOR SOLUTION FOR INJECTION
     Route: 065
  10. DAUNORUBICIN HYDROCHLORIDE [Suspect]
     Active Substance: DAUNORUBICIN HYDROCHLORIDE
     Dosage: INJECTION
     Route: 042
  11. HYDROCORTISONE SODIUM SUCCINATE [Suspect]
     Active Substance: HYDROCORTISONE SODIUM SUCCINATE
     Indication: Chloroma
     Route: 065
  12. HYDROCORTISONE SODIUM SUCCINATE [Suspect]
     Active Substance: HYDROCORTISONE SODIUM SUCCINATE
     Indication: Brain sarcoma
     Route: 065
  13. ASPARAGINASE [Suspect]
     Active Substance: ASPARAGINASE
     Indication: Chloroma
     Route: 065
  14. ASPARAGINASE [Suspect]
     Active Substance: ASPARAGINASE
     Indication: Brain sarcoma
     Dosage: POWDER FOR SOLUTION FOR INTRAMUSCULAR
     Route: 030
  15. METHOTREXATE [Suspect]
     Active Substance: METHOTREXATE
     Indication: Chloroma
     Dosage: 2 REGIMEN
     Route: 065
  16. METHOTREXATE [Suspect]
     Active Substance: METHOTREXATE
     Indication: Brain sarcoma
     Route: 065

REACTIONS (8)
  - General physical health deterioration [Unknown]
  - Hydrocephalus [Unknown]
  - Off label use [Unknown]
  - Off label use [Unknown]
  - Pyrexia [Unknown]
  - Infection [Unknown]
  - Neoplasm progression [Unknown]
  - Septic shock [Unknown]
